FAERS Safety Report 16961248 (Version 1)
Quarter: 2019Q4

REPORT INFORMATION
  Report Type: Report from Study
  Country: JP (occurrence: JP)
  Receive Date: 20191025
  Receipt Date: 20191025
  Transmission Date: 20200122
  Serious: Yes (Other)
  Sender: FDA-Public Use
  Company Number: JP-GLAXOSMITHKLINE-JP2016JPN007719

PATIENT
  Age: 4 Decade
  Sex: Male

DRUGS (14)
  1. PREZISTA [Suspect]
     Active Substance: DARUNAVIR ETHANOLATE
     Indication: HIV INFECTION
     Dosage: 800 MG, QD
     Route: 048
     Dates: start: 20130906, end: 20131215
  2. NORVIR [Suspect]
     Active Substance: RITONAVIR
     Indication: HIV INFECTION
     Dosage: 100 MG, UNK
     Route: 048
     Dates: start: 20130906, end: 20131215
  3. SAMTIREL [Concomitant]
     Active Substance: ATOVAQUONE
     Dosage: 750 MG, BID
     Dates: start: 20130724, end: 20130731
  4. APLEWAY [Concomitant]
     Active Substance: TOFOGLIFLOZIN
     Indication: DIABETES MELLITUS
     Dosage: 20 MG, QD
     Dates: start: 20160311, end: 20180406
  5. EPZICOM [Suspect]
     Active Substance: ABACAVIR SULFATE\LAMIVUDINE
     Indication: HIV INFECTION
     Dosage: 1 DF, UNK
     Route: 048
     Dates: start: 20130906, end: 20131215
  6. DESCOVY [Concomitant]
     Active Substance: EMTRICITABINE\TENOFOVIR ALAFENAMIDE FUMARATE
     Indication: HIV INFECTION
     Dosage: 1 DF, 1D
     Dates: start: 20170310, end: 20180406
  7. METGLUCO [Concomitant]
     Active Substance: METFORMIN HYDROCHLORIDE
     Indication: DIABETES MELLITUS
     Dosage: 1000 MG, BID
     Dates: start: 20150401, end: 20180406
  8. STRIBILD [Suspect]
     Active Substance: COBICISTAT\ELVITEGRAVIR\EMTRICITABINE\TENOFOVIR DISOPROXIL FUMARATE
     Indication: HIV INFECTION
     Dosage: 1 DF, UNK
     Route: 048
     Dates: start: 20131216, end: 20140605
  9. SAMTIREL [Concomitant]
     Active Substance: ATOVAQUONE
     Dosage: 1500 MG, QD
     Dates: start: 20130801, end: 20131011
  10. ZITHROMAC [Concomitant]
     Active Substance: AZITHROMYCIN DIHYDRATE
     Dosage: 1200 MG, WE
     Dates: start: 20131025, end: 20140221
  11. DOLUTEGRAVIR [Suspect]
     Active Substance: DOLUTEGRAVIR
     Indication: HIV INFECTION
     Dosage: 50 MG, 1D
     Route: 048
     Dates: start: 20140606, end: 20180406
  12. ZITHROMAC [Concomitant]
     Active Substance: AZITHROMYCIN DIHYDRATE
     Dosage: 1200 MG, WE
     Dates: start: 20130805, end: 20131004
  13. TRUVADA [Concomitant]
     Active Substance: EMTRICITABINE\TENOFOVIR DISOPROXIL FUMARATE
     Indication: HIV INFECTION
     Dosage: 1 DF, UNK
     Dates: start: 20140606, end: 20170309
  14. EQUA [Concomitant]
     Active Substance: VILDAGLIPTIN
     Indication: DIABETES MELLITUS
     Dosage: 50 MG, BID
     Dates: start: 20150401, end: 20180406

REACTIONS (1)
  - Dyslipidaemia [Not Recovered/Not Resolved]

NARRATIVE: CASE EVENT DATE: 20130906
